FAERS Safety Report 20004781 (Version 1)
Quarter: 2021Q4

REPORT INFORMATION
  Report Type: Spontaneous
  Country: US (occurrence: US)
  Receive Date: 20211027
  Receipt Date: 20211027
  Transmission Date: 20220303
  Serious: No
  Sender: FDA-Public Use
  Company Number: None

PATIENT
  Age: 43 Year
  Sex: Female
  Weight: 78.75 kg

DRUGS (1)
  1. AIMOVIG [Suspect]
     Active Substance: ERENUMAB-AOOE
     Indication: Migraine
     Dosage: ?          OTHER FREQUENCY:ONCE MONTHLY;
     Route: 058
     Dates: start: 20210201, end: 20210715

REACTIONS (1)
  - Constipation [None]

NARRATIVE: CASE EVENT DATE: 20210301
